APPROVED DRUG PRODUCT: HYDRALAZINE HYDROCHLORIDE
Active Ingredient: HYDRALAZINE HYDROCHLORIDE
Strength: 25MG
Dosage Form/Route: TABLET;ORAL
Application: A200737 | Product #002 | TE Code: AA
Applicant: ALKEM LABORATORIES LTD
Approved: Dec 7, 2012 | RLD: No | RS: No | Type: RX